FAERS Safety Report 7986451-7 (Version None)
Quarter: 2011Q4

REPORT INFORMATION
  Report Type: 
  Country: None (occurrence: None)
  Receive Date: 20111216
  Receipt Date: 20110714
  Transmission Date: 20120403
  Serious: No
  Sender: FDA-Public Use
  Company Number: US-BRISTOL-MYERS SQUIBB COMPANY-15903172

PATIENT
  Age: 26 Year
  Sex: Female
  Weight: 59 kg

DRUGS (5)
  1. ABILIFY [Suspect]
     Indication: DEPRESSION
     Dosage: ABILIFY DOSE: 2.5 BID (TOTAL 5 MG DOSE 7.5 MG AT ONE TIME, DOSE WAS DECREASED.
  2. CITALOPRAM [Concomitant]
  3. BUPROPION HCL [Concomitant]
  4. ABILIFY [Suspect]
     Indication: ANXIETY
     Dosage: ABILIFY DOSE: 2.5 BID (TOTAL 5 MG DOSE 7.5 MG AT ONE TIME, DOSE WAS DECREASED.
  5. ABILIFY [Suspect]
     Indication: ASPERGER'S DISORDER
     Dosage: ABILIFY DOSE: 2.5 BID (TOTAL 5 MG DOSE 7.5 MG AT ONE TIME, DOSE WAS DECREASED.

REACTIONS (2)
  - AKATHISIA [None]
  - SOMNOLENCE [None]
